FAERS Safety Report 21120179 (Version 3)
Quarter: 2022Q3

REPORT INFORMATION
  Report Type: Spontaneous
  Country: JP (occurrence: JP)
  Receive Date: 20220722
  Receipt Date: 20220726
  Transmission Date: 20221027
  Serious: Yes (Death, Hospitalization, Other)
  Sender: FDA-Public Use
  Company Number: JP-ABBVIE-22K-087-4475893-00

PATIENT
  Age: 40 Year
  Sex: Male

DRUGS (11)
  1. VENCLEXTA [Suspect]
     Active Substance: VENETOCLAX
     Indication: Acute myeloid leukaemia
     Route: 048
  2. VENCLEXTA [Suspect]
     Active Substance: VENETOCLAX
     Route: 048
  3. VENCLEXTA [Suspect]
     Active Substance: VENETOCLAX
     Route: 048
  4. VENCLEXTA [Suspect]
     Active Substance: VENETOCLAX
     Route: 048
  5. VENCLEXTA [Suspect]
     Active Substance: VENETOCLAX
     Route: 048
  6. VENCLEXTA [Suspect]
     Active Substance: VENETOCLAX
     Route: 048
  7. AZACITIDINE [Concomitant]
     Active Substance: AZACITIDINE
     Indication: Acute myeloid leukaemia
     Route: 065
  8. CYTARABINE [Concomitant]
     Active Substance: CYTARABINE
     Indication: Product used for unknown indication
     Dosage: LOW DOSE
     Route: 065
  9. TACROLIMUS [Concomitant]
     Active Substance: TACROLIMUS
     Indication: Product used for unknown indication
     Route: 065
  10. TACROLIMUS [Concomitant]
     Active Substance: TACROLIMUS
  11. HYDROXYUREA [Concomitant]
     Active Substance: HYDROXYUREA
     Indication: Product used for unknown indication
     Route: 065

REACTIONS (13)
  - Death [Fatal]
  - Acute graft versus host disease [Unknown]
  - Cardiac failure congestive [Recovering/Resolving]
  - Febrile neutropenia [Unknown]
  - Acute myeloid leukaemia [Unknown]
  - Respiratory failure [Unknown]
  - Cystitis haemorrhagic [Recovering/Resolving]
  - Blast cell count increased [Unknown]
  - Urethral pain [Unknown]
  - Performance status decreased [Unknown]
  - Enterocolitis haemorrhagic [Unknown]
  - Neutrophil count decreased [Unknown]
  - Abdominal pain lower [Unknown]
